FAERS Safety Report 7045850-0 (Version None)
Quarter: 2010Q4

REPORT INFORMATION
  Report Type: 
  Country: None (occurrence: None)
  Receive Date: 20101014
  Receipt Date: 20100923
  Transmission Date: 20110411
  Serious: Yes (Death, Hospitalization, Other)
  Sender: FDA-Public Use
  Company Number: PHEH2006US11226

PATIENT
  Sex: Female

DRUGS (9)
  1. AREDIA [Suspect]
     Dosage: UNK
  2. ZOMETA [Suspect]
     Dosage: UNK
  3. DYAZIDE [Concomitant]
  4. AMOXICILLIN [Concomitant]
  5. XELODA [Concomitant]
  6. COREG [Concomitant]
  7. LORTAB [Concomitant]
  8. ARANESP [Concomitant]
  9. LISINOPRIL [Concomitant]

REACTIONS (48)
  - ABDOMINAL DISCOMFORT [None]
  - ADENOCARCINOMA [None]
  - ANXIETY [None]
  - ASPIRATION [None]
  - ATELECTASIS [None]
  - BONE DISORDER [None]
  - BUNDLE BRANCH BLOCK LEFT [None]
  - CARDIAC FAILURE CONGESTIVE [None]
  - CARDIOMYOPATHY [None]
  - CEREBRAL ATROPHY [None]
  - COUGH [None]
  - DEATH [None]
  - DECREASED APPETITE [None]
  - DECREASED INTEREST [None]
  - DEHYDRATION [None]
  - DIARRHOEA [None]
  - DILATATION VENTRICULAR [None]
  - DIVERTICULUM [None]
  - DYSPNOEA [None]
  - EDENTULOUS [None]
  - EJECTION FRACTION DECREASED [None]
  - EMPHYSEMA [None]
  - ERYTHEMA [None]
  - FATIGUE [None]
  - GENERAL PHYSICAL HEALTH DETERIORATION [None]
  - GINGIVITIS [None]
  - GOITRE [None]
  - HEART VALVE INCOMPETENCE [None]
  - HYPOXIA [None]
  - INFECTION [None]
  - MACULAR DEGENERATION [None]
  - MALAISE [None]
  - NAUSEA [None]
  - OSTEOARTHRITIS [None]
  - OSTEOMYELITIS [None]
  - OSTEONECROSIS OF JAW [None]
  - OSTEOPOROSIS [None]
  - PAIN [None]
  - PLEURAL EFFUSION [None]
  - PNEUMONIA [None]
  - PURULENCE [None]
  - RENAL FAILURE ACUTE [None]
  - SECONDARY SEQUESTRUM [None]
  - VISION BLURRED [None]
  - VISUAL ACUITY REDUCED [None]
  - VOMITING [None]
  - WEIGHT DECREASED [None]
  - WOUND COMPLICATION [None]
